FAERS Safety Report 4560329-3 (Version None)
Quarter: 2005Q1

REPORT INFORMATION
  Report Type: 
  Country: None (occurrence: None)
  Receive Date: 20050125
  Receipt Date: 20050114
  Transmission Date: 20050727
  Serious: Yes (Death)
  Sender: FDA-Public Use
  Company Number: FR-JNJFOC-20040604690

PATIENT
  Age: 38 Year
  Sex: Female

DRUGS (2)
  1. RISPERDAL [Suspect]
     Indication: DRUG USE FOR UNKNOWN INDICATION
     Dosage: 1MG
     Route: 049
  2. LORAZEPAM [Suspect]
     Indication: DRUG USE FOR UNKNOWN INDICATION
     Dosage: 1MG
     Route: 049

REACTIONS (3)
  - COMPLETED SUICIDE [None]
  - DRUG ABUSER [None]
  - OVERDOSE [None]
